FAERS Safety Report 6602677-9 (Version None)
Quarter: 2010Q1

REPORT INFORMATION
  Report Type: 
  Country: None (occurrence: None)
  Receive Date: 20100218
  Receipt Date: 20100202
  Transmission Date: 20100710
  Serious: Yes (Hospitalization, Other)
  Sender: FDA-Public Use
  Company Number: JPI-P-009151

PATIENT
  Age: 43 Year
  Sex: Male
  Weight: 127.9144 kg

DRUGS (7)
  1. XYREM [Suspect]
     Indication: INSOMNIA
     Dosage: 4.5 GM (2.25 GM,2 IN 1 D),ORAL; 9 GM (4.5 GM,2 IN 1 D), ORAL
     Route: 048
     Dates: start: 20091007, end: 20090101
  2. XYREM [Suspect]
     Indication: NARCOLEPSY
     Dosage: 4.5 GM (2.25 GM,2 IN 1 D),ORAL; 9 GM (4.5 GM,2 IN 1 D), ORAL
     Route: 048
     Dates: start: 20091007, end: 20090101
  3. XYREM [Suspect]
     Indication: INSOMNIA
     Dosage: 4.5 GM (2.25 GM,2 IN 1 D),ORAL; 9 GM (4.5 GM,2 IN 1 D), ORAL
     Route: 048
     Dates: start: 20090101, end: 20091225
  4. XYREM [Suspect]
     Indication: NARCOLEPSY
     Dosage: 4.5 GM (2.25 GM,2 IN 1 D),ORAL; 9 GM (4.5 GM,2 IN 1 D), ORAL
     Route: 048
     Dates: start: 20090101, end: 20091225
  5. BUPROPION HCL [Concomitant]
  6. CARISOPRODOL [Concomitant]
  7. ANTACID TAB [Concomitant]

REACTIONS (12)
  - ABNORMAL DREAMS [None]
  - CONDITION AGGRAVATED [None]
  - DEPRESSION [None]
  - FLATULENCE [None]
  - GRIP STRENGTH DECREASED [None]
  - HEADACHE [None]
  - HOMICIDAL IDEATION [None]
  - HYPOAESTHESIA [None]
  - LUNG DISORDER [None]
  - MUSCLE SPASMS [None]
  - NERVE INJURY [None]
  - PANIC ATTACK [None]
